FAERS Safety Report 15347479 (Version 2)
Quarter: 2018Q3

REPORT INFORMATION
  Report Type: Spontaneous
  Country: ES (occurrence: ES)
  Receive Date: 20180904
  Receipt Date: 20180904
  Transmission Date: 20181010
  Serious: Yes (Other)
  Sender: FDA-Public Use
  Company Number: ES-BAYER-2018-116517

PATIENT
  Age: 28 Year
  Sex: Female

DRUGS (1)
  1. KYLEENA [Suspect]
     Active Substance: LEVONORGESTREL
     Dosage: 17.5 MCG/24HR, CONT
     Route: 015
     Dates: start: 20180409, end: 20180615

REACTIONS (2)
  - Infection susceptibility increased [Recovered/Resolved with Sequelae]
  - Uterine perforation [Recovered/Resolved with Sequelae]

NARRATIVE: CASE EVENT DATE: 20180615
